FAERS Safety Report 13206096 (Version 2)
Quarter: 2017Q1

REPORT INFORMATION
  Report Type: Report from Study
  Country: None (occurrence: NL)
  Receive Date: 20170209
  Receipt Date: 20170214
  Transmission Date: 20170428
  Serious: Yes (Death, Life-Threatening, Other)
  Sender: FDA-Public Use
  Company Number: NL-ABBVIE-17P-114-1866487-00

PATIENT
  Sex: Male

DRUGS (1)
  1. DUODOPA [Suspect]
     Active Substance: CARBIDOPA\LEVODOPA
     Indication: PARKINSON^S DISEASE
     Dosage: MD: 4.5, CD: 3.1, ED: 2, CND: 2.3
     Route: 050
     Dates: start: 20100105

REACTIONS (4)
  - Hip surgery [Unknown]
  - Suicidal ideation [Not Recovered/Not Resolved]
  - Polyneuropathy [Unknown]
  - Euthanasia [Fatal]
